FAERS Safety Report 5835386-4 (Version None)
Quarter: 2008Q3

REPORT INFORMATION
  Report Type: 
  Country: None (occurrence: None)
  Receive Date: 20080806
  Receipt Date: 20080723
  Transmission Date: 20090109
  Serious: Yes (Hospitalization)
  Sender: FDA-Public Use
  Company Number: US-MERCK-0709USA02033

PATIENT
  Age: 65 Year
  Sex: Male

DRUGS (8)
  1. PRINZIDE [Suspect]
     Route: 048
     Dates: end: 20020901
  2. FLOMAX (MORNIFLUMATE) [Concomitant]
     Route: 048
  3. CLARITIN [Concomitant]
     Indication: HYPERSENSITIVITY
     Route: 048
  4. ACETAMINOPHEN AND HYDROCODONE BITARTRATE [Concomitant]
     Route: 048
  5. PREVACID [Concomitant]
     Route: 048
  6. ZOLOFT [Concomitant]
     Route: 048
  7. DILANTIN [Concomitant]
     Route: 048
  8. ZOCOR [Concomitant]
     Route: 048

REACTIONS (13)
  - ADVERSE DRUG REACTION [None]
  - ANAEMIA [None]
  - BENIGN PROSTATIC HYPERPLASIA [None]
  - BLOOD PRESSURE INCREASED [None]
  - CELLULITIS [None]
  - CONFUSIONAL STATE [None]
  - DELIRIUM [None]
  - DRUG INEFFECTIVE [None]
  - HYPERTENSION [None]
  - PANCREATITIS ACUTE [None]
  - PRESYNCOPE [None]
  - PYREXIA [None]
  - STREPTOCOCCAL INFECTION [None]
